FAERS Safety Report 6682701-8 (Version None)
Quarter: 2010Q2

REPORT INFORMATION
  Report Type: 
  Country: None (occurrence: None)
  Receive Date: 20100413
  Receipt Date: 20100329
  Transmission Date: 20101027
  Serious: Yes (Death)
  Sender: FDA-Public Use
  Company Number: 2010US001054

PATIENT
  Age: 52 Year
  Sex: Male

DRUGS (10)
  1. PROGRAF [Suspect]
     Indication: IMMUNOSUPPRESSANT DRUG THERAPY
     Dosage: 4 MG, UID/QD, ORAL
     Route: 048
     Dates: start: 20081105, end: 20090825
  2. PROGRAF [Suspect]
     Indication: LIVER TRANSPLANT
     Dosage: 4 MG, UID/QD, ORAL
     Route: 048
     Dates: start: 20081105, end: 20090825
  3. CELLCEPT [Suspect]
     Indication: IMMUNOSUPPRESSANT DRUG THERAPY
     Dosage: 2000 MG, UID/QD, ORAL
     Route: 048
     Dates: start: 20081014, end: 20090825
  4. CELLCEPT [Suspect]
     Indication: LIVER TRANSPLANT
     Dosage: 2000 MG, UID/QD, ORAL
     Route: 048
     Dates: start: 20081014, end: 20090825
  5. ASPIRIN [Concomitant]
  6. MAGNESIUM OXIDE (MAGNESIUM OXIDE) [Concomitant]
  7. LOPRESSOR [Concomitant]
  8. ZOFRAN [Concomitant]
  9. BACTRIM DS [Concomitant]
  10. ACTIGALL [Concomitant]

REACTIONS (4)
  - HEPATIC NEOPLASM MALIGNANT [None]
  - METASTASIS [None]
  - NAUSEA [None]
  - VOMITING [None]
